FAERS Safety Report 17094176 (Version 1)
Quarter: 2019Q4

REPORT INFORMATION
  Report Type: Spontaneous
  Country: TR (occurrence: TR)
  Receive Date: 20191129
  Receipt Date: 20191129
  Transmission Date: 20200122
  Serious: Yes (Hospitalization, Other)
  Sender: FDA-Public Use
  Company Number: NVSC2019TR050104

PATIENT
  Age: 60 Year
  Sex: Male

DRUGS (1)
  1. PAZOPANIB [Suspect]
     Active Substance: PAZOPANIB
     Indication: RENAL CELL CARCINOMA
     Dosage: UNK
     Route: 065
     Dates: start: 201809

REACTIONS (8)
  - Peripheral swelling [Recovered/Resolved]
  - Oedema peripheral [Recovered/Resolved]
  - Erythema [Recovered/Resolved]
  - Arthritis [Recovered/Resolved]
  - Tenosynovitis [Recovered/Resolved]
  - Seronegative arthritis [Recovered/Resolved]
  - Arthralgia [Recovered/Resolved]
  - Oedema [Recovered/Resolved]
